FAERS Safety Report 9734369 (Version 3)
Quarter: 2014Q1

REPORT INFORMATION
  Report Type: Spontaneous
  Country: AR (occurrence: AR)
  Receive Date: 20131206
  Receipt Date: 20140303
  Transmission Date: 20141002
  Serious: Yes (Hospitalization, Other)
  Sender: FDA-Public Use
  Company Number: AR-AMGEN-ARGSP2013085845

PATIENT
  Age: 36 Year
  Sex: Female

DRUGS (4)
  1. ENBREL [Suspect]
     Indication: RHEUMATOID ARTHRITIS
     Dosage: 25 MG, 2X/WEEK
     Route: 065
     Dates: start: 20050720, end: 2012
  2. MEPREDNISONE [Concomitant]
     Dosage: 8 MG, 1X/DAY
     Dates: start: 2004
  3. DICLOFENAC [Concomitant]
     Indication: PAIN
     Dosage: UNK UNK, AS NECESSARY
  4. IBUPROFEN [Concomitant]
     Indication: PAIN
     Dosage: UNK UNK, AS NECESSARY

REACTIONS (3)
  - Haemorrhage [Recovered/Resolved]
  - Menstrual disorder [Recovered/Resolved]
  - Anaemia [Recovered/Resolved]
